FAERS Safety Report 7237718-1 (Version None)
Quarter: 2011Q1

REPORT INFORMATION
  Report Type: 
  Country: None (occurrence: None)
  Receive Date: 20110121
  Receipt Date: 20110113
  Transmission Date: 20110831
  Serious: Yes (Death, Hospitalization, Other)
  Sender: FDA-Public Use
  Company Number: JP-ROCHE-745876

PATIENT
  Age: 84 Year
  Sex: Male
  Weight: 58 kg

DRUGS (16)
  1. ALIMTA [Suspect]
     Indication: LUNG ADENOCARCINOMA
     Dosage: NOTE: DOSAGE IS UNCERTAIN.
     Route: 041
     Dates: start: 20101004, end: 20101028
  2. BROTIZOLAM [Concomitant]
     Route: 048
     Dates: start: 20100624, end: 20101118
  3. LOXOPROFEN [Concomitant]
     Dosage: FORM: PER ORAL AGENT.
     Route: 048
     Dates: start: 20100401, end: 20101122
  4. PANVITAN [Concomitant]
     Route: 048
     Dates: start: 20100930, end: 20101119
  5. RISPERDAL [Concomitant]
  6. NORVASC [Concomitant]
     Route: 048
     Dates: start: 19800101, end: 20101119
  7. CODEINE SULFATE [Concomitant]
     Route: 048
     Dates: start: 20101004, end: 20101119
  8. OXYCONTIN [Concomitant]
     Route: 048
     Dates: start: 20101013, end: 20101126
  9. PICIBANIL [Suspect]
     Indication: MALIGNANT PLEURAL EFFUSION
     Route: 065
     Dates: start: 20100913, end: 20100913
  10. PREDONINE [Concomitant]
     Route: 065
     Dates: start: 20100922, end: 20101122
  11. ZOSYN [Concomitant]
     Route: 041
     Dates: start: 20101115, end: 20101120
  12. AVASTIN [Suspect]
     Indication: LUNG ADENOCARCINOMA
     Route: 041
     Dates: start: 20101004, end: 20101028
  13. ALLELOCK [Concomitant]
     Route: 048
     Dates: start: 20100603, end: 20101119
  14. TEPRENONE [Concomitant]
     Dosage: NAME: ANTAGOSTIN
     Route: 048
     Dates: start: 20100401, end: 20101122
  15. ZOSYN [Concomitant]
     Route: 041
     Dates: start: 20101114, end: 20101114
  16. SEROQUEL [Concomitant]
     Dosage: FORM: PERORAL AGENT
     Route: 048
     Dates: start: 20101122, end: 20101126

REACTIONS (3)
  - INTERSTITIAL LUNG DISEASE [None]
  - DISEASE PROGRESSION [None]
  - GASTROINTESTINAL HAEMORRHAGE [None]
